FAERS Safety Report 13328239 (Version 1)
Quarter: 2017Q1

REPORT INFORMATION
  Report Type: Spontaneous
  Country: US (occurrence: US)
  Receive Date: 20170313
  Receipt Date: 20170313
  Transmission Date: 20170428
  Serious: No
  Sender: FDA-Public Use
  Company Number: US-JNJFOC-20170203547

PATIENT
  Age: 30 Year
  Sex: Female
  Weight: 54.43 kg

DRUGS (2)
  1. WOMENS ROGAINE UNSCENTED [Suspect]
     Active Substance: MINOXIDIL
     Route: 061
  2. WOMENS ROGAINE UNSCENTED [Suspect]
     Active Substance: MINOXIDIL
     Indication: HAIR DISORDER
     Dosage: 1/2 CAPFUL
     Route: 061
     Dates: start: 20170130, end: 20170201

REACTIONS (6)
  - Product use issue [Recovering/Resolving]
  - Infection [Recovering/Resolving]
  - Rash pruritic [Recovering/Resolving]
  - Pain of skin [Recovering/Resolving]
  - Folliculitis [Recovering/Resolving]
  - Rash erythematous [Recovering/Resolving]

NARRATIVE: CASE EVENT DATE: 20170130
